FAERS Safety Report 7871334-3 (Version None)
Quarter: 2011Q4

REPORT INFORMATION
  Report Type: 
  Country: None (occurrence: None)
  Receive Date: 20111029
  Receipt Date: 20110301
  Transmission Date: 20120403
  Serious: No
  Sender: FDA-Public Use
  Company Number: US-AMGEN-USASP2011011603

PATIENT
  Age: 17 Year
  Sex: Female
  Weight: 68.04 kg

DRUGS (5)
  1. CETIRIZINE HCL [Concomitant]
     Dosage: 5 MG, UNK
  2. ENBREL [Suspect]
     Indication: PRODUCT USED FOR UNKNOWN INDICATION
     Dosage: 50 MG, QWK
     Route: 058
  3. PREDNISONE [Concomitant]
     Dosage: 5 MG, UNK
  4. FOLIC ACID [Concomitant]
     Dosage: 1 MG, UNK
  5. TOPAMAX [Concomitant]
     Dosage: 25 MG, UNK

REACTIONS (1)
  - INITIAL INSOMNIA [None]
